FAERS Safety Report 23566657 (Version 1)
Quarter: 2024Q1

REPORT INFORMATION
  Report Type: Spontaneous
  Country: US (occurrence: US)
  Receive Date: 20240226
  Receipt Date: 20240226
  Transmission Date: 20240409
  Serious: No
  Sender: FDA-Public Use
  Company Number: US-AMNEAL PHARMACEUTICALS-2023-AMRX-00980

PATIENT
  Age: 71 Year
  Sex: Female

DRUGS (2)
  1. RYTARY [Suspect]
     Active Substance: CARBIDOPA\LEVODOPA
     Indication: Parkinson^s disease
     Dosage: 1 CAPSULES, TID,36.25/145 MILLIGRAM
     Route: 048
     Dates: start: 20230101, end: 20230201
  2. RYTARY [Suspect]
     Active Substance: CARBIDOPA\LEVODOPA
     Dosage: 1 CAPSULES, TID,48.75/195 MILLIGRAM
     Route: 048
     Dates: start: 20230322

REACTIONS (8)
  - Tremor [Unknown]
  - Illness [Unknown]
  - Abdominal pain upper [Unknown]
  - Restlessness [Unknown]
  - Paraesthesia oral [Unknown]
  - Erythema [Unknown]
  - Musculoskeletal stiffness [Unknown]
  - Dry mouth [Unknown]

NARRATIVE: CASE EVENT DATE: 20230101
